FAERS Safety Report 23121734 (Version 1)
Quarter: 2023Q4

REPORT INFORMATION
  Report Type: Spontaneous
  Country: RO (occurrence: RO)
  Receive Date: 20231029
  Receipt Date: 20231029
  Transmission Date: 20240110
  Serious: Yes (Other)
  Sender: FDA-Public Use
  Company Number: RO-PFIZER INC-PV202300175559

PATIENT
  Age: 40 Year
  Sex: Male

DRUGS (2)
  1. XELJANZ [Suspect]
     Active Substance: TOFACITINIB CITRATE
     Indication: Colitis ulcerative
     Dosage: 10 MG, 2X/DAY
     Dates: start: 202301
  2. XELJANZ [Suspect]
     Active Substance: TOFACITINIB CITRATE
     Dosage: 5 MG, 2X/DAY
     Dates: start: 202310

REACTIONS (11)
  - Inflammatory bowel disease [Recovered/Resolved]
  - C-reactive protein increased [Unknown]
  - Haematochezia [Unknown]
  - Haemoglobin decreased [Unknown]
  - Mean cell volume decreased [Unknown]
  - Mean cell haemoglobin decreased [Unknown]
  - Red blood cell count decreased [Unknown]
  - Mean cell haemoglobin concentration decreased [Unknown]
  - Red blood cell sedimentation rate increased [Unknown]
  - Frequent bowel movements [Unknown]
  - Mucous stools [Unknown]

NARRATIVE: CASE EVENT DATE: 20230101
